FAERS Safety Report 7572934-0 (Version None)
Quarter: 2011Q2

REPORT INFORMATION
  Report Type: 
  Country: None (occurrence: None)
  Receive Date: 20110627
  Receipt Date: 20110614
  Transmission Date: 20111010
  Serious: Yes (Other)
  Sender: FDA-Public Use
  Company Number: US-CELGENEUS-163-20785-11062176

PATIENT
  Sex: Male
  Weight: 104.42 kg

DRUGS (2)
  1. THALOMID [Suspect]
     Indication: MULTIPLE MYELOMA
     Dosage: 100 MILLIGRAM
     Route: 048
     Dates: start: 20110202, end: 20110420
  2. COUMADIN [Concomitant]
     Dosage: 2.5 MILLIGRAM
     Route: 065

REACTIONS (1)
  - HENOCH-SCHONLEIN PURPURA [None]
